FAERS Safety Report 9272079 (Version 2)
Quarter: 2013Q3

REPORT INFORMATION
  Report Type: Report from Study
  Country: FR (occurrence: FR)
  Receive Date: 20130506
  Receipt Date: 20130711
  Transmission Date: 20140515
  Serious: Yes (Hospitalization)
  Sender: FDA-Public Use
  Company Number: FR-ACTELION-A-CH2013-82438

PATIENT
  Age: 71 Year
  Sex: Male
  Weight: 72 kg

DRUGS (5)
  1. TRACLEER [Suspect]
     Indication: SCLERODERMA RENAL CRISIS
     Dosage: 125 MG, BID
     Route: 048
     Dates: start: 20121218, end: 20130417
  2. TRACLEER [Suspect]
     Dosage: 62.5 MG, BID
     Route: 048
     Dates: start: 20121123, end: 20121218
  3. TRACLEER [Suspect]
     Dosage: 62.5 MG, BID
     Route: 048
     Dates: start: 20130417
  4. TRIATEC [Concomitant]
     Dosage: 10 MG, UNK
     Dates: start: 20121108
  5. TRIATEC [Concomitant]
     Dosage: 5 MG, TID

REACTIONS (6)
  - Cardiac failure high output [Not Recovered/Not Resolved]
  - Dyspnoea [Not Recovered/Not Resolved]
  - Tachycardia [Not Recovered/Not Resolved]
  - Scleroderma renal crisis [Unknown]
  - Disease progression [Unknown]
  - Anaemia [Unknown]
